FAERS Safety Report 13306011 (Version 2)
Quarter: 2017Q1

REPORT INFORMATION
  Report Type: Spontaneous
  Country: US (occurrence: US)
  Receive Date: 20170308
  Receipt Date: 20170310
  Transmission Date: 20170428
  Serious: Yes (Hospitalization)
  Sender: FDA-Public Use
  Company Number: US-LUNDBECK-DKLU2026826

PATIENT
  Age: 68 Year
  Sex: Female

DRUGS (4)
  1. NORTHERA [Suspect]
     Active Substance: DROXIDOPA
     Dosage: 100MG PER 2 HOURS FOR A TOTAL OF 400MG
     Route: 065
  2. NORTHERA [Suspect]
     Active Substance: DROXIDOPA
     Dosage: SCHEDULE A AND TITRATING
     Route: 065
     Dates: start: 20170220, end: 20170227
  3. NORTHERA [Suspect]
     Active Substance: DROXIDOPA
     Indication: NEUROPATHY PERIPHERAL
     Dosage: SCHEDULE A AND TITRATING
     Route: 065
     Dates: start: 20170220
  4. NORTHERA [Suspect]
     Active Substance: DROXIDOPA
     Indication: AUTONOMIC FAILURE SYNDROME
     Dosage: SCHEDULE B
     Route: 065
     Dates: start: 201702

REACTIONS (8)
  - Urinary incontinence [Unknown]
  - Blood pressure increased [Unknown]
  - Syncope [Unknown]
  - Drug administration error [Unknown]
  - Loss of consciousness [Unknown]
  - Blood iron decreased [Unknown]
  - Headache [Unknown]
  - Heart rate decreased [Unknown]

NARRATIVE: CASE EVENT DATE: 20170220
